FAERS Safety Report 8491070-2 (Version None)
Quarter: 2012Q2

REPORT INFORMATION
  Report Type: 
  Country: None (occurrence: None)
  Receive Date: 20120402
  Receipt Date: 20111212
  Transmission Date: 20120825
  Serious: Yes (Other)
  Sender: FDA-Public Use
  Company Number: AUR-APL-2011-05993

PATIENT
  Age: 69 Year
  Sex: Female
  Weight: 59.4212 kg

DRUGS (11)
  1. ASPIRIN [Concomitant]
  2. METFFORMIN HYDROCHLORIDE [Concomitant]
  3. ALPRAZOLAM [Concomitant]
  4. PAXIL [Suspect]
     Indication: ATRIAL FIBRILLATION
     Dates: start: 20111001
  5. PAXIL [Suspect]
     Indication: ARRHYTHMIA
     Dates: start: 20111001
  6. PAXIL [Suspect]
     Indication: ANXIETY
     Dates: start: 20111001
  7. OMEPRAZOLE [Concomitant]
  8. SERTRALINE HYDROCHLORIDE [Suspect]
     Indication: ARRHYTHMIA
     Dosage: (50 MG,1 D)
     Dates: end: 20110901
  9. SERTRALINE HYDROCHLORIDE [Suspect]
     Indication: ANXIETY
     Dosage: (50 MG,1 D)
     Dates: end: 20110901
  10. SERTRALINE HYDROCHLORIDE [Suspect]
     Indication: ATRIAL FIBRILLATION
     Dosage: (50 MG,1 D)
     Dates: end: 20110901
  11. CHLOR-TABS (CHLORPHENAMINE MALEATE) [Concomitant]

REACTIONS (2)
  - FLUSHING [None]
  - ATRIAL FIBRILLATION [None]
